FAERS Safety Report 8732886 (Version 4)
Quarter: 2013Q3

REPORT INFORMATION
  Report Type: Spontaneous
  Country: DE (occurrence: DE)
  Receive Date: 20120820
  Receipt Date: 20130702
  Transmission Date: 20140515
  Serious: Yes (Other)
  Sender: FDA-Public Use
  Company Number: DE-BAYER-2012-085105

PATIENT
  Age: 41 Year
  Sex: Female
  Weight: 76 kg

DRUGS (3)
  1. BETAFERON [Suspect]
     Indication: MULTIPLE SCLEROSIS
     Dosage: 250 MCG/ML, QOD
     Route: 058
  2. FLUOXETIN [Concomitant]
     Dosage: 20 MG, QD
  3. LYRICA [Concomitant]
     Dosage: 150 MG, BID

REACTIONS (3)
  - Abdominal wall abscess [Not Recovered/Not Resolved]
  - Abscess limb [None]
  - Abscess [None]
